FAERS Safety Report 9843714 (Version 2)
Quarter: 2014Q3

REPORT INFORMATION
  Report Type: Spontaneous
  Country: US (occurrence: US)
  Receive Date: 20140125
  Receipt Date: 20140731
  Transmission Date: 20150326
  Serious: Yes (Hospitalization, Other)
  Sender: FDA-Public Use
  Company Number: US-009507513-1401USA010791

PATIENT
  Sex: Female

DRUGS (1)
  1. NUVARING [Suspect]
     Active Substance: ETHINYL ESTRADIOL\ETONOGESTREL
     Dosage: UNK
     Route: 067
     Dates: start: 20081110, end: 20090311

REACTIONS (16)
  - Ischaemic stroke [Recovering/Resolving]
  - Headache [Recovered/Resolved]
  - Loss of consciousness [Recovered/Resolved]
  - Tension headache [Unknown]
  - Staphylococcal skin infection [Unknown]
  - Neck pain [Recovered/Resolved]
  - Fall [Recovered/Resolved]
  - Dysarthria [Recovered/Resolved]
  - Cerebrovascular accident [Unknown]
  - Asthma [Unknown]
  - Central nervous system lesion [Unknown]
  - Dizziness [Recovered/Resolved]
  - Vomiting [Recovered/Resolved]
  - Visual impairment [Unknown]
  - Migraine [Unknown]
  - Nausea [Recovered/Resolved]

NARRATIVE: CASE EVENT DATE: 200901
